FAERS Safety Report 8149157 (Version 2)
Quarter: 2013Q1

REPORT INFORMATION
  Report Type: Spontaneous
  Country: US (occurrence: US)
  Receive Date: 20110922
  Receipt Date: 20130304
  Transmission Date: 20140127
  Serious: Yes (Life-Threatening, Other)
  Sender: FDA-Public Use
  Company Number: US-ASTRAZENECA-2011SE24271

PATIENT
  Age: 34 Year
  Sex: Male
  Weight: 61.2 kg

DRUGS (2)
  1. SEROQUEL XR [Suspect]
     Indication: BIPOLAR I DISORDER
     Route: 048
     Dates: start: 2011
  2. SEROQUEL XR [Suspect]
     Indication: BIPOLAR I DISORDER
     Route: 048

REACTIONS (6)
  - Suicide attempt [Unknown]
  - Mania [Unknown]
  - Insomnia [Unknown]
  - Tremor [Unknown]
  - Nightmare [Unknown]
  - Drug dose omission [Unknown]
